FAERS Safety Report 6082195-X (Version None)
Quarter: 2009Q1

REPORT INFORMATION
  Report Type: 
  Country: None (occurrence: None)
  Receive Date: 20090218
  Receipt Date: 20090212
  Transmission Date: 20090719
  Serious: Yes (Other)
  Sender: FDA-Public Use
  Company Number: B0534281A

PATIENT
  Age: 35 Year
  Sex: Female

DRUGS (2)
  1. SERETIDE [Suspect]
     Indication: ASTHMA
     Dosage: 2PUFF THREE TIMES PER DAY
     Route: 055
     Dates: start: 20080701
  2. VENTOLIN [Suspect]
     Indication: ASTHMA
     Dosage: 100MCG AS REQUIRED
     Route: 055

REACTIONS (7)
  - APHONIA [None]
  - ASTHMA [None]
  - DYSPNOEA [None]
  - FATIGUE [None]
  - MIDDLE INSOMNIA [None]
  - NASOPHARYNGITIS [None]
  - SEASONAL ALLERGY [None]
